FAERS Safety Report 17384073 (Version 1)
Quarter: 2020Q1

REPORT INFORMATION
  Report Type: Spontaneous
  Country: US (occurrence: US)
  Receive Date: 20200206
  Receipt Date: 20200206
  Transmission Date: 20200409
  Serious: No
  Sender: FDA-Public Use
  Company Number: US-ABBVIE-19K-163-3006361-00

PATIENT
  Age: 67 Year
  Sex: Female
  Weight: 149.69 kg

DRUGS (2)
  1. XELJANZ XR [Suspect]
     Active Substance: TOFACITINIB CITRATE
     Indication: PSORIATIC ARTHROPATHY
     Dosage: 11MG TABLET BY MOUTH ONCE A DAY
     Route: 048
     Dates: start: 201905
  2. HUMIRA [Suspect]
     Active Substance: ADALIMUMAB
     Indication: PSORIASIS
     Route: 058
     Dates: start: 2018

REACTIONS (5)
  - Throat clearing [Unknown]
  - Rash [Unknown]
  - Unevaluable event [Unknown]
  - Sensation of foreign body [Unknown]
  - Occupational exposure to dust [Unknown]

NARRATIVE: CASE EVENT DATE: 20191113
